FAERS Safety Report 8819474 (Version 1)
Quarter: 2012Q4

REPORT INFORMATION
  Report Type: 
  Country: FI (occurrence: FI)
  Receive Date: 20120930
  Receipt Date: 20120930
  Transmission Date: 20130627
  Serious: Yes (Other)
  Sender: FDA-Public Use
  Company Number: FI-BRISTOL-MYERS SQUIBB COMPANY-16977084

PATIENT

DRUGS (2)
  1. ABILIFY [Suspect]
     Indication: BIPOLAR DISORDER
     Dosage: Initially given less dose,dose lowered slightly
  2. ELDEPRYL [Concomitant]

REACTIONS (2)
  - Parkinson^s disease [Unknown]
  - Feeling abnormal [Unknown]
